FAERS Safety Report 12468969 (Version 2)
Quarter: 2016Q3

REPORT INFORMATION
  Report Type: Spontaneous
  Country: CH (occurrence: CH)
  Receive Date: 20160615
  Receipt Date: 20160902
  Transmission Date: 20161109
  Serious: Yes (Other)
  Sender: FDA-Public Use
  Company Number: CH-JNJFOC-20160609324

PATIENT
  Sex: Female
  Weight: 67 kg

DRUGS (9)
  1. ATORVASTATIN [Concomitant]
     Active Substance: ATORVASTATIN
     Route: 065
  2. XARELTO [Suspect]
     Active Substance: RIVAROXABAN
     Indication: ATRIAL FIBRILLATION
     Route: 048
     Dates: start: 20121004, end: 201509
  3. XARELTO [Suspect]
     Active Substance: RIVAROXABAN
     Indication: ATRIAL FIBRILLATION
     Route: 048
     Dates: start: 20150908, end: 20160507
  4. TRIATEC [Concomitant]
     Active Substance: RAMIPRIL
     Dosage: 2X5
     Route: 065
  5. LANSOPRAZOLE. [Concomitant]
     Active Substance: LANSOPRAZOLE
     Route: 065
  6. XARELTO [Suspect]
     Active Substance: RIVAROXABAN
     Indication: CEREBROVASCULAR ACCIDENT PROPHYLAXIS
     Route: 048
     Dates: start: 20121004, end: 201509
  7. XARELTO [Suspect]
     Active Substance: RIVAROXABAN
     Indication: CEREBROVASCULAR ACCIDENT PROPHYLAXIS
     Route: 048
     Dates: start: 20150908, end: 20160507
  8. NEBIVOLOL. [Concomitant]
     Active Substance: NEBIVOLOL
     Route: 065
  9. NEBILET [Concomitant]
     Active Substance: NEBIVOLOL
     Dosage: 2X5
     Route: 065

REACTIONS (4)
  - Hemiplegia [Recovering/Resolving]
  - Ischaemic stroke [Recovering/Resolving]
  - Renal failure [Unknown]
  - Drug ineffective [Unknown]
